FAERS Safety Report 19062203 (Version 1)
Quarter: 2021Q1

REPORT INFORMATION
  Report Type: Spontaneous
  Country: JP (occurrence: JP)
  Receive Date: 20210326
  Receipt Date: 20210326
  Transmission Date: 20210420
  Serious: Yes (Other)
  Sender: FDA-Public Use
  Company Number: JP-AMERICAN REGENT INC-2021000749

PATIENT
  Age: 28 Year
  Sex: Female

DRUGS (1)
  1. FERINJECT [Suspect]
     Active Substance: FERRIC CARBOXYMALTOSE
     Indication: IRON DEFICIENCY ANAEMIA
     Dosage: 250 MG
     Dates: start: 202102, end: 202102

REACTIONS (3)
  - Infusion site extravasation [Not Recovered/Not Resolved]
  - Maternal exposure during pregnancy [Unknown]
  - Pigmentation disorder [Unknown]

NARRATIVE: CASE EVENT DATE: 202102
